FAERS Safety Report 10023013 (Version 2)
Quarter: 2014Q2

REPORT INFORMATION
  Report Type: Spontaneous
  Country: US (occurrence: US)
  Receive Date: 20140319
  Receipt Date: 20140528
  Transmission Date: 20141212
  Serious: No
  Sender: FDA-Public Use
  Company Number: US-GILEAD-2014-0096978

PATIENT
  Sex: Female

DRUGS (4)
  1. LETAIRIS [Suspect]
     Indication: PULMONARY ARTERIAL HYPERTENSION
     Dosage: 10 MG, QD
     Route: 065
     Dates: start: 20121224
  2. LETAIRIS [Suspect]
     Indication: OBESITY
  3. LETAIRIS [Suspect]
     Indication: HYPOVENTILATION
  4. LASIX                              /00032601/ [Concomitant]

REACTIONS (1)
  - Abdominal distension [Unknown]
